FAERS Safety Report 11658661 (Version 2)
Quarter: 2015Q4

REPORT INFORMATION
  Report Type: Report from Study
  Country: US (occurrence: US)
  Receive Date: 20151026
  Receipt Date: 20151215
  Transmission Date: 20160304
  Serious: Yes (Other)
  Sender: FDA-Public Use
  Company Number: PHEH2015US020651

PATIENT
  Age: 81 Year
  Sex: Female

DRUGS (3)
  1. COSENTYX [Suspect]
     Active Substance: SECUKINUMAB
     Indication: PSORIASIS
     Dosage: 300 MG, QMO (Q28DAYS)
     Route: 058
     Dates: start: 20150330
  2. CIPRO [Concomitant]
     Active Substance: CIPROFLOXACIN HYDROCHLORIDE
     Indication: GASTRIC INFECTION
     Route: 065
  3. TACLONEX [Suspect]
     Active Substance: BETAMETHASONE DIPROPIONATE\CALCIPOTRIENE\CALCIPOTRIENE HYDRATE
     Indication: PSORIASIS
     Dosage: UNK UNK, QD
     Route: 061
     Dates: start: 2011

REACTIONS (6)
  - Feeling hot [Recovering/Resolving]
  - Neuropathy peripheral [Recovering/Resolving]
  - Skin swelling [Unknown]
  - Erythema [Recovering/Resolving]
  - Pain of skin [Unknown]
  - Drug effect incomplete [Unknown]

NARRATIVE: CASE EVENT DATE: 201503
